FAERS Safety Report 19322700 (Version 1)
Quarter: 2021Q2

REPORT INFORMATION
  Report Type: Report from Study
  Country: US (occurrence: US)
  Receive Date: 20210527
  Receipt Date: 20210527
  Transmission Date: 20210717
  Serious: Yes (Death, Life-Threatening, Hospitalization, Other)
  Sender: FDA-Public Use
  Company Number: US-BAXTER-2021BAX012631

PATIENT
  Age: 72 Year
  Sex: Female

DRUGS (8)
  1. CARBOPLATIN. [Suspect]
     Active Substance: CARBOPLATIN
     Indication: OVARIAN CANCER
     Route: 065
     Dates: start: 20210114
  2. NIVOLUMAB [Suspect]
     Active Substance: NIVOLUMAB
     Dosage: LAST DOSE
     Route: 042
     Dates: start: 20200709
  3. NIVOLUMAB [Suspect]
     Active Substance: NIVOLUMAB
     Indication: OVARIAN CANCER
     Route: 042
     Dates: start: 20200528
  4. BEVACIZUMAB. [Suspect]
     Active Substance: BEVACIZUMAB
     Indication: OVARIAN CANCER
     Route: 042
     Dates: start: 20200528
  5. BEVACIZUMAB. [Suspect]
     Active Substance: BEVACIZUMAB
     Dosage: LAST DOSE
     Route: 042
     Dates: start: 20200625
  6. DOXIL [Suspect]
     Active Substance: DOXORUBICIN HYDROCHLORIDE
     Indication: OVARIAN CANCER
     Route: 065
     Dates: start: 20210114
  7. RUCAPARIB [Suspect]
     Active Substance: RUCAPARIB
     Indication: OVARIAN CANCER
     Route: 065
  8. RUCAPARIB [Suspect]
     Active Substance: RUCAPARIB
     Dosage: LAST DOSE
     Route: 065
     Dates: start: 20201230

REACTIONS (5)
  - Malignant neoplasm progression [Unknown]
  - Cerebrovascular accident [Unknown]
  - Neutrophil count abnormal [Unknown]
  - Death [Fatal]
  - Platelet disorder [Unknown]

NARRATIVE: CASE EVENT DATE: 20210118
